FAERS Safety Report 11473134 (Version 1)
Quarter: 2015Q3

REPORT INFORMATION
  Report Type: Spontaneous
  Country: US (occurrence: None)
  Receive Date: 20150828
  Receipt Date: 20150828
  Transmission Date: 20151125
  Serious: Yes (Other)
  Sender: FDA-Public Use
  Company Number: AMAG201400285

PATIENT
  Sex: Female

DRUGS (1)
  1. FERAHEME [Suspect]
     Active Substance: FERUMOXYTOL NON-STOICHIOMETRIC MAGNETITE
     Dosage: UNK, SINGLE, INTRAVENOUS
     Route: 042
     Dates: start: 201405, end: 201405

REACTIONS (2)
  - Pharyngeal oedema [None]
  - Anaphylactic reaction [None]

NARRATIVE: CASE EVENT DATE: 201405
